FAERS Safety Report 10050752 (Version 2)
Quarter: 2014Q2

REPORT INFORMATION
  Report Type: Spontaneous
  Country: US (occurrence: US)
  Receive Date: 20140401
  Receipt Date: 20140401
  Transmission Date: 20141212
  Serious: No
  Sender: FDA-Public Use
  Company Number: US-ASTRAZENECA-2013SE76517

PATIENT
  Sex: Female
  Weight: 74.8 kg

DRUGS (16)
  1. NEXIUM [Suspect]
     Indication: DYSPEPSIA
     Route: 048
     Dates: start: 20130522, end: 201306
  2. NEXIUM [Suspect]
     Indication: GASTROOESOPHAGEAL REFLUX DISEASE
     Route: 048
     Dates: start: 20130522, end: 201306
  3. NEXIUM [Suspect]
     Indication: DYSPEPSIA
     Route: 048
     Dates: start: 201306, end: 201306
  4. NEXIUM [Suspect]
     Indication: GASTROOESOPHAGEAL REFLUX DISEASE
     Route: 048
     Dates: start: 201306, end: 201306
  5. NEXIUM [Suspect]
     Indication: DYSPEPSIA
     Route: 048
     Dates: start: 201306, end: 201309
  6. NEXIUM [Suspect]
     Indication: GASTROOESOPHAGEAL REFLUX DISEASE
     Route: 048
     Dates: start: 201306, end: 201309
  7. NEXIUM [Suspect]
     Indication: DYSPEPSIA
     Route: 048
     Dates: start: 201310
  8. NEXIUM [Suspect]
     Indication: GASTROOESOPHAGEAL REFLUX DISEASE
     Route: 048
     Dates: start: 201310
  9. MILK THISSEL [Concomitant]
     Indication: SUPPLEMENTATION THERAPY
  10. VITAMIN A [Concomitant]
     Indication: SUPPLEMENTATION THERAPY
  11. VITMAIN B [Concomitant]
  12. VITAMIN D [Concomitant]
  13. VITAMIN E [Concomitant]
  14. B12 [Concomitant]
  15. MULTI VITAMIN [Concomitant]
  16. CLARITHROMYCIN AND METRONIDAZOLE [Concomitant]
     Indication: HELICOBACTER GASTRITIS

REACTIONS (11)
  - Dyspepsia [Unknown]
  - Abdominal distension [Unknown]
  - Helicobacter infection [Unknown]
  - Abdominal pain [Unknown]
  - Dry mouth [Recovered/Resolved]
  - Burning sensation [Unknown]
  - Abdominal discomfort [Unknown]
  - Abdominal tenderness [Unknown]
  - Off label use [Unknown]
  - Drug ineffective [Unknown]
  - Intentional product misuse [Unknown]
